FAERS Safety Report 8872564 (Version 1)
Quarter: 2012Q4

REPORT INFORMATION
  Report Type: 
  Country: US (occurrence: US)
  Receive Date: 20121026
  Receipt Date: 20121026
  Transmission Date: 20130627
  Serious: No
  Sender: FDA-Public Use
  Company Number: US-AMGEN-USASP2012049564

PATIENT
  Age: 58 Year
  Sex: Male
  Weight: 113.38 kg

DRUGS (1)
  1. ENBREL [Suspect]
     Indication: PSORIASIS
     Dosage: 50 mg/ml, 2 times/wk
     Route: 058
     Dates: start: 20120516

REACTIONS (2)
  - Skin discolouration [Unknown]
  - Injection site reaction [Unknown]
